FAERS Safety Report 16783638 (Version 2)
Quarter: 2019Q4

REPORT INFORMATION
  Report Type: Report from Study
  Country: US (occurrence: US)
  Receive Date: 20190908
  Receipt Date: 20191002
  Transmission Date: 20200122
  Serious: Yes (Hospitalization)
  Sender: FDA-Public Use
  Company Number: US-TESARO-2019-TSO02917-US

PATIENT
  Sex: Female
  Weight: 52 kg

DRUGS (1)
  1. NIRAPARIB [Suspect]
     Active Substance: NIRAPARIB
     Indication: OVARIAN CANCER
     Dosage: 100 MG QPM WITHOUT FOOD
     Dates: start: 20190810

REACTIONS (3)
  - Full blood count decreased [Unknown]
  - Underdose [Unknown]
  - Adverse drug reaction [Unknown]
